FAERS Safety Report 18213310 (Version 1)
Quarter: 2020Q3

REPORT INFORMATION
  Report Type: Spontaneous
  Country: US (occurrence: US)
  Receive Date: 20200831
  Receipt Date: 20200831
  Transmission Date: 20201103
  Serious: Yes (Disabling)
  Sender: FDA-Public Use
  Company Number: US-SA-2020SA229199

PATIENT

DRUGS (1)
  1. DUPIXENT [Suspect]
     Active Substance: DUPILUMAB
     Dosage: 300 MG, QOW
     Route: 058
     Dates: start: 201903

REACTIONS (4)
  - Back pain [Unknown]
  - Abdominal pain lower [Unknown]
  - Bedridden [Unknown]
  - Influenza immunisation [Unknown]

NARRATIVE: CASE EVENT DATE: 2019
